FAERS Safety Report 20579451 (Version 1)
Quarter: 2022Q1

REPORT INFORMATION
  Report Type: Spontaneous
  Country: HR (occurrence: HR)
  Receive Date: 20220310
  Receipt Date: 20220310
  Transmission Date: 20220423
  Serious: Yes (Other)
  Sender: FDA-Public Use
  Company Number: None

PATIENT
  Age: 55 Year
  Sex: Male

DRUGS (3)
  1. ZOLOFT [Suspect]
     Active Substance: SERTRALINE HYDROCHLORIDE
     Dosage: 650 MG, 1X/DAY
     Route: 048
     Dates: start: 20210811, end: 20210811
  2. AMLODIPINE BESYLATE\INDAPAMIDE\PERINDOPRIL ARGININE [Suspect]
     Active Substance: AMLODIPINE BESYLATE\INDAPAMIDE\PERINDOPRIL ARGININE
     Dosage: 4 DF, 1X/DAY
     Route: 048
     Dates: start: 20210811, end: 20210811
  3. RAMIPRIL [Suspect]
     Active Substance: RAMIPRIL
     Dosage: UNK, 1X/DAY (THE WHOLE BOX)
     Route: 048
     Dates: start: 20210811, end: 20210811

REACTIONS (3)
  - Intentional overdose [Unknown]
  - Tachycardia [Recovered/Resolved]
  - Suicide attempt [Recovered/Resolved]

NARRATIVE: CASE EVENT DATE: 20210811
